FAERS Safety Report 12413422 (Version 2)
Quarter: 2016Q3

REPORT INFORMATION
  Report Type: Spontaneous
  Country: JP (occurrence: JP)
  Receive Date: 20160527
  Receipt Date: 20160930
  Transmission Date: 20161109
  Serious: Yes (Other)
  Sender: FDA-Public Use
  Company Number: JP-MYLANLABS-2016M1021400

PATIENT

DRUGS (13)
  1. PACLITAXEL. [Suspect]
     Active Substance: PACLITAXEL
     Dosage: 250 MG, QD
     Route: 041
     Dates: start: 20150711, end: 20150711
  2. PACLITAXEL. [Suspect]
     Active Substance: PACLITAXEL
     Dosage: 250 MG, QD
     Route: 041
     Dates: start: 20150810, end: 20150810
  3. CARBOPLATIN MYLAN [Suspect]
     Active Substance: CARBOPLATIN
     Dosage: 570 MG, QD
     Route: 041
     Dates: start: 20150810, end: 20150810
  4. DEXART [Concomitant]
     Active Substance: DEXAMETHASONE SODIUM PHOSPHATE
     Dosage: 20 MG, QD
     Route: 041
     Dates: start: 20150810, end: 20150810
  5. RANITIDINE. [Concomitant]
     Active Substance: RANITIDINE
     Dosage: 50 MG, QD
     Route: 041
     Dates: start: 20150810, end: 20150810
  6. POLARAMINE [Concomitant]
     Active Substance: DEXCHLORPHENIRAMINE MALEATE
     Dosage: 5 MG, QD
     Route: 041
     Dates: start: 20150810, end: 20150810
  7. POLARAMINE [Concomitant]
     Active Substance: DEXCHLORPHENIRAMINE MALEATE
     Indication: VAGINAL ADENOCARCINOMA
     Dosage: 5 MG, QD
     Route: 041
     Dates: start: 20150711, end: 20150711
  8. ALOXI [Concomitant]
     Active Substance: PALONOSETRON HYDROCHLORIDE
     Indication: VAGINAL ADENOCARCINOMA
     Dosage: 0.75 MG, QD
     Route: 041
     Dates: start: 20150711, end: 20150711
  9. PACLITAXEL. [Suspect]
     Active Substance: PACLITAXEL
     Indication: VAGINAL ADENOCARCINOMA
     Dosage: 180 MG, QD
     Route: 041
  10. CARBOPLATIN MYLAN [Suspect]
     Active Substance: CARBOPLATIN
     Indication: VAGINAL ADENOCARCINOMA
     Dosage: 570 MG, QD
     Route: 041
     Dates: start: 20150711, end: 20150711
  11. ALOXI [Concomitant]
     Active Substance: PALONOSETRON HYDROCHLORIDE
     Dosage: 0.75 MG, QD
     Route: 041
     Dates: start: 20150810, end: 20150810
  12. RANITIDINE. [Concomitant]
     Active Substance: RANITIDINE
     Indication: VAGINAL ADENOCARCINOMA
     Dosage: 50 MG, QD
     Route: 041
     Dates: start: 20150711, end: 20150711
  13. DEXART [Concomitant]
     Active Substance: DEXAMETHASONE SODIUM PHOSPHATE
     Indication: VAGINAL ADENOCARCINOMA
     Dosage: 20 MG, QD
     Route: 041
     Dates: start: 20150711, end: 20150711

REACTIONS (1)
  - Toxic skin eruption [Recovered/Resolved]

NARRATIVE: CASE EVENT DATE: 20150811
